FAERS Safety Report 12951840 (Version 1)
Quarter: 2016Q4

REPORT INFORMATION
  Report Type: Spontaneous
  Country: CN (occurrence: CN)
  Receive Date: 20161117
  Receipt Date: 20161117
  Transmission Date: 20170207
  Serious: Yes (Death, Life-Threatening, Hospitalization, Other)
  Sender: FDA-Public Use
  Company Number: CN-TAKEDA-2016MPI009567

PATIENT
  Age: 73 Year
  Sex: Male

DRUGS (1)
  1. VELCADE [Suspect]
     Active Substance: BORTEZOMIB
     Indication: AMYLOIDOSIS
     Dosage: 2.2 MG, 1/WEEK
     Route: 065
     Dates: start: 201606

REACTIONS (6)
  - Product use issue [Unknown]
  - Cerebral infarction [Fatal]
  - Cardiac failure [Not Recovered/Not Resolved]
  - Coma [Not Recovered/Not Resolved]
  - Myocardial infarction [Fatal]
  - Off label use [Unknown]

NARRATIVE: CASE EVENT DATE: 201606
